FAERS Safety Report 7104708 (Version 2)
Quarter: 2012Q4

REPORT INFORMATION
  Report Type: 
  Country: US (occurrence: None)
  Receive Date: 20090826
  Receipt Date: 20120910
  Transmission Date: 20130627
  Serious: Yes (Other)
  Sender: FDA-Public Use
  Company Number: 2009AP003359

PATIENT
  Age: 69 Year
  Sex: Male

DRUGS (1)
  1. AMIODARONE HYDROCHLORIDE [Suspect]
     Indication: VENTRICULAR TACHYARRHYTHMIA

REACTIONS (3)
  - ESSENTIAL TREMOR [None]
  - TREMOR [None]
  - NEUROTOXICITY [None]
